FAERS Safety Report 5144896-7 (Version None)
Quarter: 2006Q4

REPORT INFORMATION
  Report Type: 
  Country: None (occurrence: None)
  Receive Date: 20061107
  Receipt Date: 20061026
  Transmission Date: 20070319
  Serious: Yes (Hospitalization)
  Sender: FDA-Public Use
  Company Number: PHBS2006JP16851

PATIENT
  Sex: Female

DRUGS (2)
  1. NEORAL [Suspect]
     Indication: INTERSTITIAL LUNG DISEASE
     Dosage: 150 MG/D
     Route: 048
  2. PREDNISOLONE [Concomitant]
     Indication: INTERSTITIAL LUNG DISEASE
     Route: 048

REACTIONS (3)
  - PANCREATIC PSEUDOCYST [None]
  - PANCREATITIS [None]
  - RESPIRATORY DISORDER [None]
